FAERS Safety Report 11654113 (Version 1)
Quarter: 2015Q4

REPORT INFORMATION
  Report Type: Spontaneous
  Country: FR (occurrence: FR)
  Receive Date: 20151023
  Receipt Date: 20151023
  Transmission Date: 20160304
  Serious: Yes (Hospitalization)
  Sender: FDA-Public Use
  Company Number: FR-PFIZER INC-2015338600

PATIENT
  Age: 7 Year
  Sex: Male
  Weight: 24 kg

DRUGS (4)
  1. DOLIPRANE [Suspect]
     Active Substance: ACETAMINOPHEN
     Indication: ABDOMINAL PAIN
     Dosage: 1 DF, SINGLE
     Route: 048
     Dates: start: 20150820, end: 20150820
  2. DOLIPRANE [Suspect]
     Active Substance: ACETAMINOPHEN
     Indication: PYREXIA
  3. ADVILMED ENFANTS ET NOURRISSONS [Suspect]
     Active Substance: IBUPROFEN
     Indication: ABDOMINAL PAIN
     Dosage: 1 DF, SINGLE
     Route: 048
     Dates: start: 20150820, end: 20150820
  4. ADVILMED ENFANTS ET NOURRISSONS [Suspect]
     Active Substance: IBUPROFEN
     Indication: PYREXIA

REACTIONS (3)
  - Haematemesis [Recovered/Resolved]
  - Vomiting [Unknown]
  - Urticaria [Unknown]

NARRATIVE: CASE EVENT DATE: 201508
